FAERS Safety Report 4501013-1 (Version None)
Quarter: 2004Q4

REPORT INFORMATION
  Report Type: 
  Country: None (occurrence: None)
  Receive Date: 20041115
  Receipt Date: 20041101
  Transmission Date: 20050328
  Serious: Yes (Other)
  Sender: FDA-Public Use
  Company Number: RU-GLAXOSMITHKLINE-B0351011A

PATIENT
  Age: 6 Year
  Sex: Female

DRUGS (1)
  1. FLIXOTIDE [Suspect]
     Indication: ASTHMA
     Dosage: 250MCG TWICE PER DAY
     Route: 055
     Dates: start: 20041012, end: 20041013

REACTIONS (5)
  - CONJUNCTIVITIS ALLERGIC [None]
  - EYE REDNESS [None]
  - EYELIDS PRURITUS [None]
  - LACRIMATION INCREASED [None]
  - OEDEMA [None]
